FAERS Safety Report 4332721-3 (Version None)
Quarter: 2004Q1

REPORT INFORMATION
  Report Type: 
  Country: None (occurrence: None)
  Receive Date: 20040330
  Receipt Date: 20040323
  Transmission Date: 20041129
  Serious: Yes (Hospitalization, Other)
  Sender: FDA-Public Use
  Company Number: FRWYE657323MAR04

PATIENT
  Age: 29 Year
  Sex: Female

DRUGS (1)
  1. MYNOCINE (MINOCYCLINE, CAPSULE) [Suspect]
     Indication: ACNE
     Dosage: ORAL
     Route: 048
     Dates: start: 20031106, end: 20040206

REACTIONS (8)
  - ALANINE AMINOTRANSFERASE INCREASED [None]
  - ARTHRALGIA [None]
  - ASTHENIA [None]
  - C-REACTIVE PROTEIN INCREASED [None]
  - HEADACHE [None]
  - NECK PAIN [None]
  - PYREXIA [None]
  - RED BLOOD CELL SEDIMENTATION RATE INCREASED [None]
